FAERS Safety Report 8259480-6 (Version None)
Quarter: 2012Q2

REPORT INFORMATION
  Report Type: 
  Country: None (occurrence: None)
  Receive Date: 20120404
  Receipt Date: 20120329
  Transmission Date: 20120825
  Serious: Yes (Other)
  Sender: FDA-Public Use
  Company Number: US-AMGEN-USASP2011003884

PATIENT
  Age: 41 Year
  Sex: Female
  Weight: 124.72 kg

DRUGS (9)
  1. ALPRAZOLAM [Concomitant]
     Dosage: UNK
  2. FOLIC ACID [Concomitant]
     Dosage: UNK
  3. METHOTREXATE [Concomitant]
     Dosage: UNK
  4. ENBREL [Suspect]
     Indication: RHEUMATOID ARTHRITIS
     Dosage: 50 MG, QWK
     Route: 058
     Dates: start: 20101001, end: 20110121
  5. LORTAB [Concomitant]
     Dosage: UNK
  6. LEFLUNOMIDE [Concomitant]
     Dosage: UNK
  7. FAMOTIDINE [Concomitant]
     Dosage: UNK
  8. CYMBALTA [Concomitant]
     Dosage: UNK
  9. LEVOTHYROXINE SODIUM [Concomitant]
     Dosage: UNK

REACTIONS (3)
  - RASH PRURITIC [None]
  - RASH MACULAR [None]
  - RASH ERYTHEMATOUS [None]
